FAERS Safety Report 9980129 (Version 1)
Quarter: 2014Q1

REPORT INFORMATION
  Report Type: Spontaneous
  Country: US (occurrence: None)
  Receive Date: 20140305
  Receipt Date: 20140305
  Transmission Date: 20141002
  Serious: Yes (Hospitalization)
  Sender: FDA-Public Use
  Company Number: None

PATIENT
  Age: 32 Year
  Sex: Male
  Weight: 80 kg

DRUGS (1)
  1. AMOXICILLIN/CLAVULANATE [Suspect]
     Indication: POSTOPERATIVE CARE
     Dates: start: 20140205, end: 20140215

REACTIONS (8)
  - Myalgia [None]
  - Arthralgia [None]
  - Fatigue [None]
  - Chills [None]
  - Rash [None]
  - Lymphadenopathy [None]
  - Drug reaction with eosinophilia and systemic symptoms [None]
  - Lip swelling [None]
